FAERS Safety Report 16934119 (Version 3)
Quarter: 2020Q4

REPORT INFORMATION
  Report Type: Report from Study
  Country: US (occurrence: US)
  Receive Date: 20191018
  Receipt Date: 20201014
  Transmission Date: 20210113
  Serious: Yes (Other)
  Sender: FDA-Public Use
  Company Number: US-MYLANLABS-2019M1093591

PATIENT
  Age: 54 Year
  Sex: Female
  Weight: 120 kg

DRUGS (1)
  1. GLATIRAMER ACETATE INJECTION [Suspect]
     Active Substance: GLATIRAMER ACETATE
     Indication: RELAPSING-REMITTING MULTIPLE SCLEROSIS
     Dosage: 40 MILLIGRAM, 3XW
     Dates: start: 201901

REACTIONS (17)
  - Aphasia [Unknown]
  - Hypertension [Unknown]
  - Product dose omission issue [Not Recovered/Not Resolved]
  - Anxiety [Unknown]
  - Chest pain [Unknown]
  - Injection site indentation [Unknown]
  - Pain [Unknown]
  - Feeling abnormal [Unknown]
  - Palpitations [Unknown]
  - Dyspnoea [Unknown]
  - Hot flush [Unknown]
  - Muscle spasms [Unknown]
  - Injection site haemorrhage [Unknown]
  - Tenderness [Unknown]
  - Weight decreased [Unknown]
  - Vision blurred [Unknown]
  - Injection site mass [Not Recovered/Not Resolved]

NARRATIVE: CASE EVENT DATE: 201901
